FAERS Safety Report 25909402 (Version 2)
Quarter: 2025Q4

REPORT INFORMATION
  Report Type: Report from Study
  Country: EU (occurrence: EU)
  Receive Date: 20251011
  Receipt Date: 20251022
  Transmission Date: 20260117
  Serious: Yes (Death, Other)
  Sender: ABBVIE
  Company Number: EU-ABBVIE-6494728

PATIENT
  Age: 87 Year
  Sex: Male

DRUGS (2)
  1. CARBIDOPA [Suspect]
     Active Substance: CARBIDOPA
     Indication: Product used for unknown indication
     Route: 050
     Dates: start: 20200722
  2. CARBIDOPA [Suspect]
     Active Substance: CARBIDOPA

REACTIONS (2)
  - Pulmonary embolism [Fatal]
  - Phlebitis [Recovering/Resolving]

NARRATIVE: CASE EVENT DATE: 20250922
